FAERS Safety Report 9323074 (Version 1)
Quarter: 2013Q2

REPORT INFORMATION
  Report Type: Spontaneous
  Country: BR (occurrence: BR)
  Receive Date: 20130603
  Receipt Date: 20130603
  Transmission Date: 20140414
  Serious: Yes (Hospitalization, Other)
  Sender: FDA-Public Use
  Company Number: PHHY2011BR78042

PATIENT
  Sex: Female
  Weight: 70 kg

DRUGS (9)
  1. BUFFERIN [Suspect]
     Indication: DEEP VEIN THROMBOSIS
     Dosage: 81 MG, DAILY
     Route: 048
  2. SOMALGIN [Suspect]
     Indication: DEEP VEIN THROMBOSIS
     Dosage: 81 MG, DAILY
     Route: 048
  3. SIMVASTATIN [Concomitant]
     Indication: BLOOD CHOLESTEROL
     Dosage: 40 MG, DAILY
     Route: 048
  4. PANTOPRAZOLE [Concomitant]
     Indication: ABDOMINAL DISCOMFORT
     Dosage: 40 MG, DAILY
     Route: 048
  5. CALCIUM [Concomitant]
     Indication: OSTEOPOROSIS
     Dosage: 1 DF, DAILY
     Route: 048
  6. ADDERA D3 [Concomitant]
     Indication: MINERAL SUPPLEMENTATION
     Dosage: 5 DRP, DAILY
     Route: 048
  7. PROEPA [Concomitant]
     Indication: EYE LUBRICATION THERAPY
     Dosage: 1 DF, QD
     Route: 048
  8. RIVOTRIL [Concomitant]
     Indication: SLEEP DISORDER
     Dosage: 1 DF, QD AT NIGHT
     Route: 048
  9. GENTEAL [Concomitant]
     Indication: EYE LUBRICATION THERAPY
     Dosage: 1 DRP, QD AT NIGHT

REACTIONS (6)
  - Cardiovascular insufficiency [Recovering/Resolving]
  - Malaise [Not Recovered/Not Resolved]
  - Spinal fracture [Not Recovered/Not Resolved]
  - Spinal pain [Not Recovered/Not Resolved]
  - Abdominal pain upper [Not Recovered/Not Resolved]
  - Vomiting [Not Recovered/Not Resolved]
